FAERS Safety Report 7454561-9 (Version None)
Quarter: 2011Q2

REPORT INFORMATION
  Report Type: 
  Country: None (occurrence: None)
  Receive Date: 20110503
  Receipt Date: 20110418
  Transmission Date: 20111010
  Serious: Yes (Hospitalization, Other)
  Sender: FDA-Public Use
  Company Number: US-BAYER-201030522NA

PATIENT
  Age: 22 Year
  Sex: Female
  Weight: 68 kg

DRUGS (7)
  1. PROZAC [Concomitant]
  2. YAZ [Suspect]
     Indication: CONTRACEPTION
     Dosage: UNK UNK, QD
     Route: 048
     Dates: start: 20070901, end: 20071101
  3. YASMIN [Suspect]
     Indication: CONTRACEPTION
     Dosage: UNK UNK, QD
     Route: 048
     Dates: start: 20040101, end: 20040101
  4. ACETAMINOPHEN [Concomitant]
     Dosage: 650 MG, PRN
     Route: 048
  5. MOTRIN [Concomitant]
     Dosage: 800 MG, QD
     Route: 048
  6. CHLORASEPTIC [Concomitant]
  7. NSAID'S [Concomitant]

REACTIONS (4)
  - PULMONARY EMBOLISM [None]
  - COAGULOPATHY [None]
  - CEREBROVASCULAR ACCIDENT [None]
  - DEEP VEIN THROMBOSIS [None]
